FAERS Safety Report 7755635-5 (Version None)
Quarter: 2011Q3

REPORT INFORMATION
  Report Type: 
  Country: None (occurrence: None)
  Receive Date: 20110916
  Receipt Date: 20110908
  Transmission Date: 20111222
  Serious: Yes (Other)
  Sender: FDA-Public Use
  Company Number: CA-JNJFOC-20110903781

PATIENT
  Sex: Female
  Weight: 89.36 kg

DRUGS (2)
  1. USTEKINUMAB [Suspect]
     Indication: PSORIASIS
     Route: 058
     Dates: start: 20110421
  2. USTEKINUMAB [Suspect]
     Route: 058
     Dates: start: 20101207

REACTIONS (1)
  - PLATELET COUNT DECREASED [None]
